FAERS Safety Report 9521717 (Version 1)
Quarter: 2013Q3

REPORT INFORMATION
  Report Type: Report from Study
  Country: BR (occurrence: BR)
  Receive Date: 20130913
  Receipt Date: 20130913
  Transmission Date: 20140515
  Serious: Yes (Death)
  Sender: FDA-Public Use
  Company Number: PHHY2013BR101102

PATIENT
  Sex: Male

DRUGS (1)
  1. DIOVAN [Suspect]
     Dosage: 80 MG, UNK

REACTIONS (1)
  - Death [Fatal]
